FAERS Safety Report 5990564-9 (Version None)
Quarter: 2008Q4

REPORT INFORMATION
  Report Type: 
  Country: None (occurrence: None)
  Receive Date: 20081211
  Receipt Date: 20081209
  Transmission Date: 20090506
  Serious: Yes (Other)
  Sender: FDA-Public Use
  Company Number: A0759529A

PATIENT
  Age: 58 Year
  Sex: Male

DRUGS (1)
  1. ALLI [Suspect]
     Indication: WEIGHT LOSS DIET
     Route: 048
     Dates: start: 20080101, end: 20081101

REACTIONS (5)
  - ANOREXIA [None]
  - FOOD INTOLERANCE [None]
  - HEPATIC ENZYME INCREASED [None]
  - HEPATITIS [None]
  - NAUSEA [None]
